FAERS Safety Report 10038253 (Version 1)
Quarter: 2014Q1

REPORT INFORMATION
  Report Type: Spontaneous
  Country: US (occurrence: None)
  Receive Date: 20140324
  Receipt Date: 20140324
  Transmission Date: 20141002
  Serious: Yes (Death)
  Sender: FDA-Public Use
  Company Number: AUR-APL-2014-02898

PATIENT
  Age: 28 Year
  Sex: Male

DRUGS (3)
  1. OXYCODONE [Suspect]
     Indication: PRODUCT USED FOR UNKNOWN INDICATION
  2. ALPRAZOLAM (ALPRAZOLAM) [Suspect]
     Indication: PRODUCT USED FOR UNKNOWN INDICATION
  3. METHADONE (METHADONE) [Suspect]
     Indication: PRODUCT USED FOR UNKNOWN INDICATION
     Route: 048

REACTIONS (3)
  - Poisoning [None]
  - Exposure via ingestion [None]
  - Drug abuse [None]
